FAERS Safety Report 9640075 (Version 2)
Quarter: 2013Q4

REPORT INFORMATION
  Report Type: Spontaneous
  Country: BR (occurrence: BR)
  Receive Date: 20131023
  Receipt Date: 20131121
  Transmission Date: 20140711
  Serious: Yes (Other)
  Sender: FDA-Public Use
  Company Number: PHHY2013BR118991

PATIENT
  Age: 67 Year
  Sex: Female

DRUGS (10)
  1. TEGRETOL [Suspect]
     Dosage: 800 MG, DAILY
  2. TEGRETOL [Suspect]
     Indication: BIPOLAR DISORDER
     Dosage: 0.5 DF (200 MG), BID (IN THE MORNING AND IN THE AFTERNOON)
     Route: 048
  3. EFEXOR [Suspect]
     Indication: OBSESSIVE-COMPULSIVE DISORDER
     Dosage: UNK UKN, UNK
  4. RIVOTRIL [Concomitant]
     Indication: OBSESSIVE-COMPULSIVE DISORDER
     Dosage: 15 DRP, EVERY NIGHT
     Route: 048
  5. RIVOTRIL [Concomitant]
     Indication: BIPOLAR DISORDER
  6. RIVOTRIL [Concomitant]
     Indication: DEPRESSION
  7. VENLAFAXINE [Concomitant]
     Indication: DEPRESSION
     Dosage: 3 DF, DAILY
     Route: 048
  8. OXCARBAZEPINE [Concomitant]
     Indication: OBSESSIVE-COMPULSIVE DISORDER
     Dosage: 3 DF, DAILY
     Route: 048
     Dates: start: 201309, end: 201310
  9. OXCARBAZEPINE [Concomitant]
     Indication: DEPRESSION
  10. NEULEPTIL [Concomitant]
     Indication: BIPOLAR DISORDER
     Dosage: 5 DRP, DAILY

REACTIONS (8)
  - Diabetes mellitus [Recovered/Resolved]
  - Insomnia [Recovered/Resolved]
  - Abnormal behaviour [Recovered/Resolved]
  - Mood altered [Recovered/Resolved]
  - Irritability [Recovered/Resolved]
  - Nervousness [Recovered/Resolved]
  - Anger [Recovered/Resolved]
  - Incorrect dose administered [Recovered/Resolved]
